FAERS Safety Report 11239218 (Version 2)
Quarter: 2015Q3

REPORT INFORMATION
  Report Type: Spontaneous
  Country: US (occurrence: None)
  Receive Date: 20150701
  Receipt Date: 20150724
  Transmission Date: 20151125
  Serious: Yes (Hospitalization)
  Sender: FDA-Public Use
  Company Number: US-002128

PATIENT
  Age: 60 Year
  Sex: Male

DRUGS (2)
  1. SOLUTIONS FOR PARENTERAL NUTRITION [Concomitant]
     Active Substance: AMINO ACIDS\DEXTROSE\ELECTROLYTES NOS
  2. GATTEX [Suspect]
     Active Substance: TEDUGLUTIDE\WATER
     Indication: SHORT-BOWEL SYNDROME
     Dosage: (DF SUBCUTANEOUS)
     Route: 058
     Dates: start: 20150521

REACTIONS (10)
  - Tremor [None]
  - Therapy cessation [None]
  - Device related infection [None]
  - Drug dose omission [None]
  - Nausea [None]
  - Dizziness [None]
  - Refusal of treatment by patient [None]
  - Abdominal pain upper [None]
  - Chest pain [None]
  - Migraine [None]

NARRATIVE: CASE EVENT DATE: 2015
